FAERS Safety Report 5076440-7 (Version None)
Quarter: 2006Q3

REPORT INFORMATION
  Report Type: 
  Country: None (occurrence: None)
  Receive Date: 20060725
  Receipt Date: 20060404
  Transmission Date: 20061208
  Serious: No
  Sender: FDA-Public Use
  Company Number: 200612319BWH

PATIENT
  Age: 85 Year
  Sex: Male

DRUGS (6)
  1. NEXAVAR [Suspect]
     Indication: RENAL CANCER METASTATIC
     Dosage: 400 MG, BID, ORAL
     Route: 048
     Dates: start: 20060317, end: 20060404
  2. COUMADIN [Concomitant]
  3. LIPITOR [Concomitant]
  4. PROPRANOLOL [Concomitant]
  5. ASPIRIN [Concomitant]
  6. SENOKOT [SENNA ALEXANDRINA FRUIT] [Concomitant]

REACTIONS (1)
  - ERYTHEMA [None]
